FAERS Safety Report 4466755-5 (Version None)
Quarter: 2004Q3

REPORT INFORMATION
  Report Type: 
  Country: None (occurrence: None)
  Receive Date: 20040930
  Receipt Date: 20040916
  Transmission Date: 20050211
  Serious: Yes (Death, Hospitalization)
  Sender: FDA-Public Use
  Company Number: A-US2004-07149

PATIENT
  Age: 39 Year
  Sex: Male
  Weight: 160 kg

DRUGS (15)
  1. TRACLEER [Suspect]
     Indication: PULMONARY HYPERTENSION
     Dosage: SEE IMAGE
     Route: 048
     Dates: start: 20020221, end: 20040620
  2. TRACLEER [Suspect]
     Indication: PULMONARY HYPERTENSION
     Dosage: SEE IMAGE
     Route: 048
     Dates: start: 20040621, end: 20040720
  3. TRACLEER [Suspect]
     Indication: PULMONARY HYPERTENSION
     Dosage: SEE IMAGE
     Route: 048
     Dates: start: 20040721
  4. SENOKOT [Concomitant]
  5. MAGNESIUM OXIDE (MAGNESIUM OXIDE) [Concomitant]
  6. FERROUS SULFATE TAB [Concomitant]
  7. PAXIL [Concomitant]
  8. COUMADIN [Concomitant]
  9. FLOLAN [Concomitant]
  10. ZAROXOLYN [Concomitant]
  11. CLARITIN [Concomitant]
  12. ALDACTONE [Concomitant]
  13. POTASSIUM CHLORIDE [Concomitant]
  14. DOPAMINE HCL [Concomitant]
  15. OXYGEN (OXYGEN) [Concomitant]

REACTIONS (8)
  - CATHETER RELATED INFECTION [None]
  - FLUID RETENTION [None]
  - HAEMODIALYSIS [None]
  - MULTI-ORGAN FAILURE [None]
  - RIGHT VENTRICULAR FAILURE [None]
  - SEPSIS [None]
  - TACHYCARDIA [None]
  - THERAPY NON-RESPONDER [None]
